FAERS Safety Report 17280980 (Version 1)
Quarter: 2020Q1

REPORT INFORMATION
  Report Type: Spontaneous
  Country: US (occurrence: US)
  Receive Date: 20200117
  Receipt Date: 20200117
  Transmission Date: 20200409
  Serious: No
  Sender: FDA-Public Use
  Company Number: US-ELI_LILLY_AND_COMPANY-US202001007375

PATIENT
  Age: 50 Year
  Sex: Male

DRUGS (1)
  1. HUMALOG [Suspect]
     Active Substance: INSULIN LISPRO
     Indication: TYPE 1 DIABETES MELLITUS
     Dosage: UNK UNK, UNKNOWN
     Route: 065
     Dates: start: 2000

REACTIONS (6)
  - Disturbance in attention [Unknown]
  - Blood glucose abnormal [Unknown]
  - Neuropathy peripheral [Unknown]
  - Autonomic neuropathy [Unknown]
  - Sinusitis [Unknown]
  - Confusional state [Unknown]
